FAERS Safety Report 17570678 (Version 3)
Quarter: 2022Q1

REPORT INFORMATION
  Report Type: Spontaneous
  Country: ES (occurrence: ES)
  Receive Date: 20200323
  Receipt Date: 20220302
  Transmission Date: 20220423
  Serious: Yes (Hospitalization, Other)
  Sender: FDA-Public Use
  Company Number: ES-MERCK HEALTHCARE KGAA-9149220

PATIENT
  Age: 74 Year
  Sex: Male
  Weight: 82 kg

DRUGS (11)
  1. DOCETAXEL [Suspect]
     Active Substance: DOCETAXEL
     Indication: Gastrooesophageal cancer
     Dosage: 50 MILLIGRAM, CYCLICAL (ONCE EVERY 2 WEEKS)
     Route: 042
     Dates: start: 20190829
  2. OXALIPLATIN [Suspect]
     Active Substance: OXALIPLATIN
     Indication: Gastrooesophageal cancer
     Dosage: 85 MILLIGRAM, CYCLICAL (ONCE EVERY 2 WEEKS)
     Route: 042
     Dates: start: 20190829
  3. LEUCOVORIN CALCIUM [Suspect]
     Active Substance: LEUCOVORIN CALCIUM
     Indication: Gastrooesophageal cancer
     Dosage: 200 MILLIGRAM, CYCLICAL (ONCE EVERY 2 WEEKS)
     Route: 042
     Dates: start: 20190829
  4. FLUOROURACIL [Suspect]
     Active Substance: FLUOROURACIL
     Indication: Gastrooesophageal cancer
     Dosage: 2500 MILLIGRAM, CYCLICAL (ONCE EVERY 2 WEEKS)
     Route: 042
     Dates: start: 20190829
  5. AVELUMAB [Suspect]
     Active Substance: AVELUMAB
     Indication: Gastrooesophageal cancer
     Dosage: 10 MILLIGRAM/KILOGRAM, CYCLICAL (ONCE EVERY 2 WEEKS)
     Route: 042
     Dates: start: 20190829
  6. ASPIRIN [Concomitant]
     Active Substance: ASPIRIN
     Indication: Ischaemic cardiomyopathy
     Dosage: 1 DOSAGE FORM
     Route: 065
  7. FLUOROURACIL [Concomitant]
     Active Substance: FLUOROURACIL
     Indication: Gastrooesophageal cancer
     Dosage: 2500 MILLIGRAM, CYCLICAL
     Route: 042
     Dates: start: 20190829
  8. HUMULIN N [Concomitant]
     Active Substance: INSULIN HUMAN
     Indication: Diabetes mellitus
     Dosage: 26 OTHER
     Route: 065
  9. METFORMIN [Concomitant]
     Active Substance: METFORMIN HYDROCHLORIDE
     Indication: Diabetes mellitus
     Dosage: 850 MILLIGRAM
     Route: 065
  10. SIMVASTATIN [Concomitant]
     Active Substance: SIMVASTATIN
     Indication: Dyslipidaemia
     Dosage: 20 MILLIGRAM
     Route: 065
  11. SIMVASTATIN [Concomitant]
     Active Substance: SIMVASTATIN
     Indication: Hypertension

REACTIONS (1)
  - Splenic abscess [Recovered/Resolved]

NARRATIVE: CASE EVENT DATE: 20200225
